FAERS Safety Report 4915827-7 (Version None)
Quarter: 2006Q1

REPORT INFORMATION
  Report Type: 
  Country: None (occurrence: None)
  Receive Date: 20060214
  Receipt Date: 20060201
  Transmission Date: 20060701
  Serious: Yes (Other)
  Sender: FDA-Public Use
  Company Number: 006553

PATIENT
  Age: 37 Year
  Sex: Female

DRUGS (2)
  1. NORETHINDRONE + ETHINYL ESTRADIOL 28 DAY (NORETHINDRONE, ETHINYLESTRAD [Suspect]
     Indication: ORAL CONTRACEPTION
     Dosage: 1 TABLET, QD, ORAL
     Route: 048
     Dates: start: 20030101
  2. SYNTHROID [Concomitant]

REACTIONS (2)
  - PRURITUS [None]
  - URTICARIA GENERALISED [None]
